FAERS Safety Report 12348931 (Version 1)
Quarter: 2016Q2

REPORT INFORMATION
  Report Type: Spontaneous
  Country: US (occurrence: US)
  Receive Date: 20160509
  Receipt Date: 20160509
  Transmission Date: 20160815
  Serious: No
  Sender: FDA-Public Use
  Company Number: US-ELI_LILLY_AND_COMPANY-US201604006002

PATIENT
  Age: 52 Year
  Sex: Female

DRUGS (4)
  1. METFORMIN [Concomitant]
     Active Substance: METFORMIN HYDROCHLORIDE
  2. TOPAMAX [Concomitant]
     Active Substance: TOPIRAMATE
  3. TRULICITY [Suspect]
     Active Substance: DULAGLUTIDE
     Indication: METABOLIC SYNDROME
     Dosage: 1.5 MG, WEEKLY (1/W)
     Dates: start: 2015
  4. TRULICITY [Suspect]
     Active Substance: DULAGLUTIDE
     Indication: HYPOGLYCAEMIA

REACTIONS (1)
  - Extra dose administered [Unknown]

NARRATIVE: CASE EVENT DATE: 20160415
